FAERS Safety Report 4317170-6 (Version None)
Quarter: 2004Q1

REPORT INFORMATION
  Report Type: 
  Country: None (occurrence: None)
  Receive Date: 20040312
  Receipt Date: 20040226
  Transmission Date: 20041129
  Serious: Yes (Death)
  Sender: FDA-Public Use
  Company Number: 000792

PATIENT
  Age: 52 Year
  Sex: Male
  Weight: 38.2 kg

DRUGS (4)
  1. ZEVALIN THERAPY (RITUXIMAB, INDIUM-111-IBRITUMOMAB TIUXETAN, YTTRIUM-9 [Suspect]
     Indication: NON-HODGKIN'S LYMPHOMA
     Dosage: SEE IMAGE
     Route: 042
     Dates: start: 20030827, end: 20030827
  2. ZEVALIN THERAPY (RITUXIMAB, INDIUM-111-IBRITUMOMAB TIUXETAN, YTTRIUM-9 [Suspect]
     Indication: NON-HODGKIN'S LYMPHOMA
     Dosage: SEE IMAGE
     Route: 042
     Dates: start: 20030827, end: 20030827
  3. ZEVALIN THERAPY (RITUXIMAB, INDIUM-111-IBRITUMOMAB TIUXETAN, YTTRIUM-9 [Suspect]
     Indication: NON-HODGKIN'S LYMPHOMA
     Dosage: SEE IMAGE
     Route: 042
     Dates: start: 20030903, end: 20030903
  4. ZEVALIN THERAPY (RITUXIMAB, INDIUM-111-IBRITUMOMAB TIUXETAN, YTTRIUM-9 [Suspect]
     Indication: NON-HODGKIN'S LYMPHOMA
     Dosage: SEE IMAGE
     Route: 042
     Dates: start: 20030903, end: 20030903

REACTIONS (3)
  - INFLUENZA [None]
  - LUNG INFILTRATION [None]
  - STEM CELL TRANSPLANT [None]
